FAERS Safety Report 12105776 (Version 1)
Quarter: 2016Q1

REPORT INFORMATION
  Report Type: Spontaneous
  Country: US (occurrence: US)
  Receive Date: 20160223
  Receipt Date: 20160223
  Transmission Date: 20160526
  Serious: No
  Sender: FDA-Public Use
  Company Number: US-PFIZER INC-2016095111

PATIENT
  Age: 85 Year
  Sex: Female
  Weight: 59.87 kg

DRUGS (1)
  1. NEURONTIN [Suspect]
     Active Substance: GABAPENTIN
     Indication: NEUROPATHY PERIPHERAL
     Dosage: 300 MG, 4X/DAY
     Route: 048
     Dates: start: 201506

REACTIONS (3)
  - Pain [Not Recovered/Not Resolved]
  - Insomnia [Unknown]
  - Drug ineffective for unapproved indication [Unknown]
